FAERS Safety Report 8033733-9 (Version None)
Quarter: 2012Q1

REPORT INFORMATION
  Report Type: 
  Country: None (occurrence: None)
  Receive Date: 20120110
  Receipt Date: 20120104
  Transmission Date: 20120608
  Serious: Yes (Hospitalization)
  Sender: FDA-Public Use
  Company Number: JP-GLAXOSMITHKLINE-B0762431A

PATIENT
  Sex: Male

DRUGS (15)
  1. LIVACT [Concomitant]
     Dosage: 4IUAX PER DAY
     Route: 048
     Dates: start: 20000501
  2. ANDROGRAPHIS PANICULATA [Concomitant]
  3. TERMINALIA ARJUNA [Concomitant]
     Dosage: 4IUAX PER DAY
     Route: 048
     Dates: start: 20000501
  4. CHICORY [Concomitant]
     Dosage: 4IUAX PER DAY
     Route: 048
     Dates: start: 20000501
  5. DIOVAN [Concomitant]
     Dosage: 80MG PER DAY
     Route: 048
     Dates: start: 20110801
  6. HEPSERA [Suspect]
     Indication: HEPATIC CIRRHOSIS
     Dosage: 10MG PER DAY
     Route: 048
     Dates: start: 20060501
  7. LANSOPRAZOLE [Concomitant]
     Dosage: 15MG PER DAY
     Route: 048
     Dates: start: 20070301, end: 20100901
  8. EMBLICA OFFICINALIS [Concomitant]
  9. CENTELLA ASIATICA [Concomitant]
     Dosage: 4IUAX PER DAY
     Route: 048
     Dates: start: 20000501
  10. URSO 250 [Concomitant]
     Dosage: 400MG PER DAY
     Route: 048
     Dates: start: 20000501
  11. LAMIVUDINE, STAVUDINE, AND NEVIRAPINE [Suspect]
     Indication: HEPATIC CIRRHOSIS
     Dosage: 100MG PER DAY
     Route: 048
     Dates: start: 20010101
  12. BOERHAVIA [Concomitant]
     Dosage: 4IUAX PER DAY
     Route: 048
     Dates: start: 20000501
  13. FERROUS CITRATE [Concomitant]
     Dosage: 50MG PER DAY
     Route: 048
     Dates: start: 20100301, end: 20100901
  14. BACOPA MONNIERI [Concomitant]
  15. GINGER [Concomitant]

REACTIONS (9)
  - VARICES OESOPHAGEAL [None]
  - GLOMERULAR FILTRATION RATE DECREASED [None]
  - RENAL IMPAIRMENT [None]
  - ANGIODYSPLASIA [None]
  - PANCYTOPENIA [None]
  - SPLENOMEGALY [None]
  - LARGE INTESTINAL HAEMORRHAGE [None]
  - ANAEMIA [None]
  - BLOOD CREATININE INCREASED [None]
